FAERS Safety Report 8559406-1 (Version None)
Quarter: 2012Q3

REPORT INFORMATION
  Report Type: 
  Country: None (occurrence: None)
  Receive Date: 20120802
  Receipt Date: 20120723
  Transmission Date: 20120928
  Serious: Yes (Hospitalization)
  Sender: FDA-Public Use
  Company Number: US-BAYER-200917548NA

PATIENT
  Age: 52 Year
  Sex: Female

DRUGS (5)
  1. YAZ [Suspect]
     Indication: MENOPAUSE
  2. TERAZOL 1 [Concomitant]
     Indication: FUNGAL INFECTION
     Dosage: UNK
     Dates: start: 20090210
  3. YAZ [Suspect]
     Indication: UTERINE LEIOMYOMA
     Dosage: 1 DF (DAILY DOSE), QD, ORAL
     Route: 048
     Dates: start: 20081001, end: 20090301
  4. VICODIN ES [Concomitant]
     Dosage: UNK, 750MG-7.5MG
     Dates: start: 20090117
  5. AZITHROMYCIN [Concomitant]
     Indication: PNEUMONIA
     Dosage: UNK
     Dates: start: 20090117

REACTIONS (8)
  - GENERAL PHYSICAL HEALTH DETERIORATION [None]
  - PULMONARY EMBOLISM [None]
  - DEPRESSION [None]
  - EMOTIONAL DISTRESS [None]
  - INJURY [None]
  - PAIN [None]
  - MOOD SWINGS [None]
  - ANXIETY [None]
